FAERS Safety Report 8413110-9 (Version None)
Quarter: 2012Q2

REPORT INFORMATION
  Report Type: 
  Country: None (occurrence: None)
  Receive Date: 20120605
  Receipt Date: 20120531
  Transmission Date: 20120825
  Serious: Yes (Hospitalization)
  Sender: FDA-Public Use
  Company Number: US-AMGEN-USASP2012016960

PATIENT
  Age: 64 Year
  Sex: Female
  Weight: 75.3 kg

DRUGS (20)
  1. ALBUTEROL [Concomitant]
     Dosage: UNK UNK, QD PRN
  2. DETROL [Concomitant]
     Dosage: 4 MG, QD
  3. METHOTREXATE [Concomitant]
     Dosage: 2.5 MG, 6 TIMES/WK
  4. HYDROCODONE [Concomitant]
     Dosage: UNK
  5. ASPIRIN [Concomitant]
     Dosage: 81 MG, QD
  6. TENEX [Concomitant]
     Dosage: 3 MG, QD
  7. DEXILANT [Concomitant]
     Dosage: 60 MG, BID
  8. VOLTAREN [Concomitant]
     Dosage: 2 G, QID
  9. RESTASIS [Concomitant]
     Dosage: 0.05 %, Q12H
  10. ADVAIR DISKUS 100/50 [Concomitant]
     Dosage: UNK UNK, BID PRN
  11. ULTRAM [Concomitant]
     Dosage: UNK UNK, PRN
  12. ALLEGRA [Concomitant]
     Dosage: 180 MG, QD
  13. BENICAR [Concomitant]
     Dosage: 40 MG, QD
  14. XANAX [Concomitant]
     Dosage: 0.25 MG, TID PRN
  15. TYLENOL ARTHRITIS [Concomitant]
     Dosage: 650 MG, PRN
  16. ENBREL [Suspect]
     Indication: MUSCULOSKELETAL PAIN
     Dosage: 50 MG, QWK
     Route: 058
     Dates: start: 20071201
  17. BENZONATATE [Concomitant]
     Dosage: 100 MG, TID PRN
  18. SINGULAIR [Concomitant]
     Dosage: 10 MG, QD
  19. SYNTHROID [Concomitant]
     Dosage: 0.15 MG, QD
  20. NASONEX [Concomitant]
     Dosage: 100 MUG, QD

REACTIONS (1)
  - SINUSITIS [None]
